FAERS Safety Report 12524137 (Version 1)
Quarter: 2016Q3

REPORT INFORMATION
  Report Type: Spontaneous
  Country: DE (occurrence: DE)
  Receive Date: 20160704
  Receipt Date: 20160704
  Transmission Date: 20161109
  Serious: Yes (Other)
  Sender: FDA-Public Use
  Company Number: DE-BAUSCH-BL-2016-015199

PATIENT
  Age: 25 Year
  Sex: Male
  Weight: 80 kg

DRUGS (2)
  1. DIAZEPAM. [Suspect]
     Active Substance: DIAZEPAM
     Indication: PRODUCT USED FOR UNKNOWN INDICATION
     Dosage: 3 TABLET(S)
     Route: 048
  2. VIVINOX SLEEP STARK SCHLAFTABLETTEN [Suspect]
     Active Substance: DIPHENHYDRAMINE HYDROCHLORIDE
     Indication: DRUG ABUSE
     Dosage: 2 TO 3 TABLET(S)
     Route: 048
     Dates: start: 20160620

REACTIONS (2)
  - Drug abuse [Unknown]
  - Somnolence [Unknown]
